FAERS Safety Report 4728588-1 (Version None)
Quarter: 2005Q3

REPORT INFORMATION
  Report Type: 
  Country: None (occurrence: None)
  Receive Date: 20050729
  Receipt Date: 20050718
  Transmission Date: 20060218
  Serious: Yes (Hospitalization)
  Sender: FDA-Public Use
  Company Number: PHEH2005US07945

PATIENT
  Age: 37 Year
  Sex: Female

DRUGS (4)
  1. LOTREL [Suspect]
     Indication: HYPERTENSION
     Dosage: 5MG AML/20MG BEN, BID
     Route: 048
     Dates: start: 20050701
  2. MAXZIDE [Suspect]
  3. COUMADIN [Concomitant]
     Dosage: 10MG
     Dates: start: 20041101
  4. VALIUM [Concomitant]
     Dosage: 0.025MG

REACTIONS (5)
  - DYSPNOEA [None]
  - FATIGUE [None]
  - NAUSEA [None]
  - PYREXIA [None]
  - RESTLESSNESS [None]
